FAERS Safety Report 9376052 (Version 2)
Quarter: 2013Q3

REPORT INFORMATION
  Report Type: Spontaneous
  Country: FR (occurrence: FR)
  Receive Date: 20130629
  Receipt Date: 20130812
  Transmission Date: 20140515
  Serious: Yes (Death, Hospitalization)
  Sender: FDA-Public Use
  Company Number: FR-B.I. PHARMACEUTICALS,INC./RIDGEFIELD-2013-FF-01759FF

PATIENT
  Age: 76 Year
  Sex: Male

DRUGS (7)
  1. SPIRIVA [Suspect]
     Indication: CHRONIC OBSTRUCTIVE PULMONARY DISEASE
     Dates: end: 20130612
  2. METFORMINE [Suspect]
     Indication: TYPE 2 DIABETES MELLITUS
     Dosage: 2550 MG
     Route: 048
     Dates: end: 20130612
  3. FUROSEMIDE [Suspect]
     Indication: HYPERTENSION
     Dosage: 160 MG
     Route: 048
     Dates: end: 20130612
  4. PREVISCAN [Suspect]
     Indication: HYPERTENSION
     Dosage: 20 MG
     Route: 048
     Dates: end: 20130612
  5. COVERSYL [Suspect]
     Indication: HYPERTENSION
     Route: 048
     Dates: end: 20130612
  6. CARDENSIEL [Suspect]
     Indication: CARDIAC FAILURE
     Dosage: 1.25 MG
     Route: 048
     Dates: end: 20130612
  7. DIFFU K [Suspect]
     Indication: HYPOKALAEMIA
     Route: 048

REACTIONS (5)
  - Lactic acidosis [Fatal]
  - Renal failure acute [Fatal]
  - Hypotension [Fatal]
  - Nausea [Unknown]
  - Dyspnoea [Unknown]
